FAERS Safety Report 4697773-X (Version None)
Quarter: 2005Q2

REPORT INFORMATION
  Report Type: 
  Country: None (occurrence: None)
  Receive Date: 20050621
  Receipt Date: 20050621
  Transmission Date: 20051028
  Serious: Yes (Hospitalization)
  Sender: FDA-Public Use
  Company Number: None

PATIENT
  Age: 69 Year
  Sex: Female
  Weight: 81 kg

DRUGS (3)
  1. OXALIPLATIN 130 MG /M2 IV [Suspect]
     Indication: MALIGNANT NEOPLASM OF AMPULLA OF VATER
     Dosage: IV
     Route: 042
     Dates: start: 20050407
  2. OXALIPLATIN 130 MG /M2 IV [Suspect]
     Indication: METASTASIS
     Dosage: IV
     Route: 042
     Dates: start: 20050407
  3. CAPECITABINE 1500 MG/M2 PO [Suspect]
     Dosage: PO
     Route: 048
     Dates: start: 20050407

REACTIONS (3)
  - ABDOMINAL PAIN [None]
  - BACTERAEMIA [None]
  - CAMPYLOBACTER INFECTION [None]
